FAERS Safety Report 11210104 (Version 1)
Quarter: 2015Q2

REPORT INFORMATION
  Report Type: Spontaneous
  Country: US (occurrence: US)
  Receive Date: 20150622
  Receipt Date: 20150622
  Transmission Date: 20150821
  Serious: No
  Sender: FDA-Public Use
  Company Number: US-009507513-1506USA005449

PATIENT
  Sex: Male

DRUGS (2)
  1. LUNESTA [Suspect]
     Active Substance: ESZOPICLONE
     Dosage: ON ALTERNATE DAYS
  2. BELSOMRA [Suspect]
     Active Substance: SUVOREXANT
     Dosage: DOSES TAKEN 2 DAYS APART
     Route: 048

REACTIONS (3)
  - Nightmare [Unknown]
  - Hallucination, visual [Unknown]
  - Dissociation [Recovered/Resolved]
